FAERS Safety Report 20223630 (Version 2)
Quarter: 2022Q1

REPORT INFORMATION
  Report Type: Spontaneous
  Country: TR (occurrence: TR)
  Receive Date: 20211223
  Receipt Date: 20220206
  Transmission Date: 20220423
  Serious: Yes (Other)
  Sender: FDA-Public Use
  Company Number: TR-NOVARTISPH-NVSC2021TR293286

PATIENT
  Sex: Male

DRUGS (1)
  1. METFORMIN HYDROCHLORIDE\VILDAGLIPTIN [Suspect]
     Active Substance: METFORMIN HYDROCHLORIDE\VILDAGLIPTIN
     Indication: Product used for unknown indication
     Dosage: UNK
     Route: 065

REACTIONS (4)
  - Foreign body in throat [Unknown]
  - Choking [Unknown]
  - Product size issue [Unknown]
  - Wrong technique in product usage process [Unknown]
